FAERS Safety Report 16261969 (Version 2)
Quarter: 2019Q2

REPORT INFORMATION
  Report Type: Report from Study
  Country: FR (occurrence: FR)
  Receive Date: 20190501
  Receipt Date: 20190508
  Transmission Date: 20190711
  Serious: Yes (Life-Threatening, Hospitalization)
  Sender: FDA-Public Use
  Company Number: FR-PFIZER INC-2019186219

PATIENT
  Weight: 16 kg

DRUGS (7)
  1. URSOFALK [Concomitant]
     Active Substance: URSODIOL
     Indication: HEPATOBILIARY DISEASE
     Dosage: 50 MG, 2X/DAY
     Dates: start: 20190307
  2. GEMTUZUMAB OZOGAMICIN [Suspect]
     Active Substance: GEMTUZUMAB OZOGAMICIN
     Indication: ACUTE MYELOID LEUKAEMIA
     Dosage: 1.9 MG, UNK
     Route: 042
     Dates: start: 20190322, end: 20190322
  3. SALBUTAMOL [Concomitant]
     Active Substance: ALBUTEROL
     Indication: BRONCHOSPASM
     Dosage: 700 UG, 3X/DAY
     Dates: start: 20190307
  4. TACROLIMUS. [Concomitant]
     Active Substance: TACROLIMUS
     Indication: IMMUNOSUPPRESSANT DRUG THERAPY
     Dosage: 0.25 MG, 1X/DAY (TAPPERED FROM 2MG TO 0.25 MG)
     Dates: start: 20190307, end: 20190312
  5. TIENAM [Concomitant]
     Active Substance: CILASTATIN SODIUM\IMIPENEM
     Indication: ANTIBIOTIC THERAPY
     Dosage: 300 MG, 4X/DAY
     Dates: start: 20190331, end: 20190417
  6. BACTRIM [Concomitant]
     Active Substance: SULFAMETHOXAZOLE\TRIMETHOPRIM
     Indication: ANTIBIOTIC THERAPY
     Dosage: 400 MG, CYCLIC (THREE TIMES PER WEEK)
     Dates: start: 20190320
  7. MITOXANTRONE [Suspect]
     Active Substance: MITOXANTRONE HYDROCHLORIDE
     Indication: ACUTE MYELOID LEUKAEMIA
     Dosage: 760 MG, 1X/DAY
     Route: 042
     Dates: start: 20190319, end: 20190322

REACTIONS (4)
  - Ascites [Recovered/Resolved]
  - Hepatic pain [Recovered/Resolved]
  - Blood creatinine increased [Recovered/Resolved]
  - Blood bilirubin increased [Recovered/Resolved]

NARRATIVE: CASE EVENT DATE: 20190405
